FAERS Safety Report 6155727-0 (Version None)
Quarter: 2009Q2

REPORT INFORMATION
  Report Type: 
  Country: None (occurrence: None)
  Receive Date: 20090415
  Receipt Date: 20090407
  Transmission Date: 20091009
  Serious: Yes (Death)
  Sender: FDA-Public Use
  Company Number: B0568907A

PATIENT
  Sex: Female
  Weight: 69 kg

DRUGS (5)
  1. ARIXTRA [Suspect]
     Indication: PULMONARY EMBOLISM
     Dosage: 7.5MG PER DAY
     Route: 058
     Dates: start: 20090215, end: 20090226
  2. CLAMOXYL [Concomitant]
     Route: 065
     Dates: start: 20090220
  3. VECTRINE [Concomitant]
     Route: 042
     Dates: start: 20090217
  4. BRICANYL [Concomitant]
     Route: 055
     Dates: start: 20090219
  5. ATROVENT [Concomitant]
     Route: 055
     Dates: start: 20090219

REACTIONS (7)
  - CARDIAC ARREST [None]
  - GENERAL PHYSICAL HEALTH DETERIORATION [None]
  - HAEMOGLOBIN DECREASED [None]
  - HAEMOTHORAX [None]
  - MUSCLE HAEMORRHAGE [None]
  - PROTHROMBIN LEVEL DECREASED [None]
  - RECTAL HAEMORRHAGE [None]
